FAERS Safety Report 4603235-8 (Version None)
Quarter: 2005Q1

REPORT INFORMATION
  Report Type: 
  Country: None (occurrence: None)
  Receive Date: 20050223
  Receipt Date: 20040223
  Transmission Date: 20050727
  Serious: Yes (Other)
  Sender: FDA-Public Use
  Company Number: PHEH2004US02291

PATIENT
  Age: 73 Year
  Sex: Female

DRUGS (1)
  1. DIOVAN [Suspect]
     Dosage: 160 MG, QD, ORAL
     Route: 048
     Dates: start: 20040123

REACTIONS (2)
  - RASH [None]
  - SYNCOPE [None]
